FAERS Safety Report 23259347 (Version 1)
Quarter: 2023Q4

REPORT INFORMATION
  Report Type: Spontaneous
  Country: FR (occurrence: FR)
  Receive Date: 20231204
  Receipt Date: 20231204
  Transmission Date: 20240109
  Serious: Yes (Hospitalization)
  Sender: FDA-Public Use
  Company Number: FR-ROCHE-3433837

PATIENT
  Age: 79 Year
  Sex: Male
  Weight: 65 kg

DRUGS (14)
  1. OXALIPLATIN [Suspect]
     Active Substance: OXALIPLATIN
     Indication: Colorectal cancer metastatic
     Dosage: UNK
     Dates: start: 20220621
  2. OXALIPLATIN [Suspect]
     Active Substance: OXALIPLATIN
     Dosage: LAST DOSE (174 MG) BEFORE SAE CYCLE 23
     Dates: start: 20230926
  3. BEVACIZUMAB [Suspect]
     Active Substance: BEVACIZUMAB
     Indication: Colorectal cancer metastatic
     Dosage: UNK
     Dates: start: 20220802
  4. BEVACIZUMAB [Suspect]
     Active Substance: BEVACIZUMAB
     Dosage: LAST DOSE (520 MG) BEFORE SAE CYCLE 23
     Dates: start: 20230926
  5. ATEZOLIZUMAB [Suspect]
     Active Substance: ATEZOLIZUMAB
     Indication: Colorectal cancer metastatic
     Dosage: UNK
     Dates: start: 20220621
  6. ATEZOLIZUMAB [Suspect]
     Active Substance: ATEZOLIZUMAB
     Dosage: ADMINISTERED LAST DOSE (1200 MG) BEFORE SAE CYCLE 23
     Dates: start: 20230926
  7. CAPECITABINE [Suspect]
     Active Substance: CAPECITABINE
     Indication: Colorectal cancer metastatic
     Dosage: UNK
     Route: 048
     Dates: start: 20220621
  8. CAPECITABINE [Suspect]
     Active Substance: CAPECITABINE
     Dosage: ADMINISTERED LAST DOSE BEFORE SAE (3300 MG)
     Dates: start: 20230913
  9. CARAFATE [Concomitant]
     Active Substance: SUCRALFATE
     Dosage: UNK
  10. CORN OIL, OXIDIZED [Concomitant]
     Active Substance: CORN OIL, OXIDIZED
     Dosage: UNK
  11. CETALKONIUM CHLORIDE\CHOLINE SALICYLATE [Concomitant]
     Active Substance: CETALKONIUM CHLORIDE\CHOLINE SALICYLATE
  12. GAVISCON COOL [CALCIUM CARBONATE;SODIUM ALGINATE;SODIUM BICARBONATE] [Concomitant]
  13. LIPTRUZET [Concomitant]
     Active Substance: ATORVASTATIN CALCIUM\EZETIMIBE
     Dosage: 40 MG
  14. ENALAPRIL MALEATE\LERCANIDIPINE HYDROCHLORIDE [Concomitant]
     Active Substance: ENALAPRIL MALEATE\LERCANIDIPINE HYDROCHLORIDE
     Dosage: 20 MG

REACTIONS (1)
  - Retinal detachment [Not Recovered/Not Resolved]

NARRATIVE: CASE EVENT DATE: 20231012
